FAERS Safety Report 9299145 (Version 2)
Quarter: 2013Q4

REPORT INFORMATION
  Report Type: Spontaneous
  Country: DK (occurrence: DK)
  Receive Date: 20130520
  Receipt Date: 20131209
  Transmission Date: 20140711
  Serious: Yes (Other)
  Sender: FDA-Public Use
  Company Number: DK-MYLANLABS-2013S1010652

PATIENT
  Age: 35 Year
  Sex: Male
  Weight: 70 kg

DRUGS (3)
  1. OLANZAPIN [Suspect]
     Indication: PSYCHOTIC DISORDER
     Dosage: STYRKE: 20 MG
     Dates: start: 20120101, end: 20130418
  2. TRILAFON /00023401/ [Suspect]
     Indication: SCHIZOPHRENIA
     Dosage: STYRKE: 8 MG
     Dates: start: 20120101, end: 20130418
  3. LEPONEX [Suspect]
     Indication: SCHIZOPHRENIA
     Dosage: STYRKE: 100 MG
     Dates: start: 20130402, end: 20130417

REACTIONS (5)
  - Neuroleptic malignant syndrome [Recovered/Resolved]
  - Body temperature increased [Recovered/Resolved]
  - Dizziness [Recovered/Resolved]
  - Malaise [Recovered/Resolved]
  - Chills [Unknown]
